FAERS Safety Report 6632210-7 (Version None)
Quarter: 2010Q1

REPORT INFORMATION
  Report Type: 
  Country: None (occurrence: None)
  Receive Date: 20100312
  Receipt Date: 20100301
  Transmission Date: 20100710
  Serious: Yes (Other)
  Sender: FDA-Public Use
  Company Number: US-BRISTOL-MYERS SQUIBB COMPANY-14997449

PATIENT
  Age: 50 Year
  Sex: Female

DRUGS (5)
  1. CYCLOPHOSPHAMIDE [Suspect]
     Indication: BREAST CANCER
     Dosage: 1 DF : 600 MG/M SUP (2).
  2. DOXORUBICIN [Suspect]
     Indication: BREAST CANCER
     Dosage: 1 DF : 60 MG/M SUP (2).
  3. DOCETAXEL [Suspect]
     Indication: BREAST CANCER
     Dosage: 1 DF : 75 MG/M SUP (2).
  4. PEGFILGRASTIM [Concomitant]
  5. TAMOXIFEN CITRATE [Concomitant]

REACTIONS (5)
  - DIARRHOEA [None]
  - FATIGUE [None]
  - NAUSEA [None]
  - NEUROPATHY PERIPHERAL [None]
  - PALMAR-PLANTAR ERYTHRODYSAESTHESIA SYNDROME [None]
